FAERS Safety Report 7369969-X (Version None)
Quarter: 2011Q1

REPORT INFORMATION
  Report Type: 
  Country: None (occurrence: None)
  Receive Date: 20110323
  Receipt Date: 20110309
  Transmission Date: 20110831
  Serious: Yes (Hospitalization, Other)
  Sender: FDA-Public Use
  Company Number: PHHY2011EC19879

PATIENT
  Sex: Female

DRUGS (5)
  1. LANICOR [Concomitant]
     Dosage: 0.25 MG, UNK
  2. DIOVAN [Suspect]
     Indication: HYPERTENSION
     Dosage: 80 MG, QD
     Route: 048
     Dates: start: 20050101, end: 20090101
  3. CALCIBON (CALCIUM CITRATE) [Concomitant]
  4. DIOVAN [Suspect]
     Dosage: 160 MG, QD
     Route: 048
     Dates: start: 20100101
  5. LASIX [Concomitant]
     Dosage: 0.25 MG, UNK

REACTIONS (7)
  - ABDOMINAL PAIN UPPER [None]
  - BREAST SWELLING [None]
  - ABDOMINAL DISTENSION [None]
  - EYE PAIN [None]
  - PNEUMONIA [None]
  - EYE SWELLING [None]
  - BREAST PAIN [None]
